FAERS Safety Report 10995831 (Version 1)
Quarter: 2015Q2

REPORT INFORMATION
  Report Type: Spontaneous
  Country: FR (occurrence: FR)
  Receive Date: 20150407
  Receipt Date: 20150407
  Transmission Date: 20150821
  Serious: Yes (Hospitalization)
  Sender: FDA-Public Use
  Company Number: FR-009507513-1504FRA002320

PATIENT
  Age: 54 Year
  Sex: Female

DRUGS (8)
  1. RIFAMPIN. [Suspect]
     Active Substance: RIFAMPIN
     Indication: INFECTION
     Dosage: 900 MG, QD
     Route: 048
     Dates: start: 20150209, end: 20150224
  2. TAZOCILLINE [Concomitant]
     Active Substance: PIPERACILLIN SODIUM\TAZOBACTAM SODIUM
     Indication: INFECTION
     Dosage: 4 G, FOUR TIMES A DAY
     Route: 042
     Dates: start: 20150209
  3. SELOKEN [Concomitant]
     Active Substance: METOPROLOL
     Dosage: 100 MG, BID (1 DF BID)
     Route: 048
     Dates: start: 201501, end: 20150226
  4. LOVENOX [Concomitant]
     Active Substance: ENOXAPARIN SODIUM
     Dosage: 0.4 ML, QD
     Route: 058
     Dates: start: 201501
  5. ACETAMINOPHEN. [Concomitant]
     Active Substance: ACETAMINOPHEN
     Dosage: UNK
     Route: 048
     Dates: start: 201501
  6. CIPROFLOXACIN. [Concomitant]
     Active Substance: CIPROFLOXACIN
     Indication: INFECTION
     Dosage: 750 MG, QD
     Route: 048
     Dates: start: 20150209
  7. AERIUS [Suspect]
     Active Substance: DESLORATADINE
     Dosage: 5 MG, QD
     Route: 048
     Dates: start: 20150211, end: 20150221
  8. LOXEN [Concomitant]
     Active Substance: NICARDIPINE HYDROCHLORIDE
     Dosage: 50 MG, BID (1 DF BID)
     Route: 048
     Dates: start: 201501, end: 20150226

REACTIONS (2)
  - Neutropenia [Recovered/Resolved]
  - Lymphopenia [Recovered/Resolved]

NARRATIVE: CASE EVENT DATE: 20150224
